FAERS Safety Report 9886120 (Version 1)
Quarter: 2014Q1

REPORT INFORMATION
  Report Type: Spontaneous
  Country: US (occurrence: US)
  Receive Date: 20140210
  Receipt Date: 20140210
  Transmission Date: 20141002
  Serious: No
  Sender: FDA-Public Use
  Company Number: US-ENDO PHARMACEUTICALS INC.-PHEN20130022

PATIENT
  Sex: Female

DRUGS (1)
  1. PHENTERMINE HCL TABLETS [Suspect]
     Indication: OVERWEIGHT
     Dosage: 37.5 MG
     Route: 048
     Dates: start: 2013

REACTIONS (1)
  - Drug ineffective [Unknown]
